FAERS Safety Report 24589376 (Version 2)
Quarter: 2025Q1

REPORT INFORMATION
  Report Type: Report from Study
  Country: CA (occurrence: CA)
  Receive Date: 20241107
  Receipt Date: 20250331
  Transmission Date: 20250409
  Serious: Yes (Hospitalization, Other)
  Sender: APELLIS PHARMACEUTICALS
  Company Number: CA-BIOVITRUM-2024-CA-005661

PATIENT

DRUGS (7)
  1. PEGCETACOPLAN [Suspect]
     Active Substance: PEGCETACOPLAN
     Indication: Paroxysmal nocturnal haemoglobinuria
     Dosage: 1 VIAL TWICE WEEKLY ON DAYS 1 AND 4
     Route: 058
     Dates: start: 20240409
  2. PEGCETACOPLAN [Suspect]
     Active Substance: PEGCETACOPLAN
     Route: 058
     Dates: start: 20250121
  3. PEGCETACOPLAN [Suspect]
     Active Substance: PEGCETACOPLAN
     Route: 058
     Dates: start: 20240409
  4. PENICILLIN [Suspect]
     Active Substance: PENICILLIN
     Indication: Product used for unknown indication
  5. SOLIRIS [Concomitant]
     Active Substance: ECULIZUMAB
     Indication: Product used for unknown indication
  6. SOLIRIS [Concomitant]
     Active Substance: ECULIZUMAB
  7. SOLIRIS [Concomitant]
     Active Substance: ECULIZUMAB

REACTIONS (41)
  - Nephrolithiasis [Unknown]
  - Vomiting [Recovering/Resolving]
  - Abdominal distension [Recovering/Resolving]
  - Chills [Recovering/Resolving]
  - Injection site pain [Not Recovered/Not Resolved]
  - Asthenia [Unknown]
  - Fear of injection [Unknown]
  - Abdominal pain [Not Recovered/Not Resolved]
  - Injection site mass [Not Recovered/Not Resolved]
  - Product use issue [Unknown]
  - Infusion site pain [Unknown]
  - Fatigue [Not Recovered/Not Resolved]
  - Headache [Unknown]
  - Myalgia [Unknown]
  - Heavy menstrual bleeding [Unknown]
  - Infusion site swelling [Unknown]
  - Epistaxis [Unknown]
  - Peripheral swelling [Unknown]
  - Rash [Unknown]
  - Oropharyngeal pain [Unknown]
  - Pain [Recovering/Resolving]
  - Loss of personal independence in daily activities [Unknown]
  - Blood iron decreased [Unknown]
  - Mastoiditis [Not Recovered/Not Resolved]
  - Illness [Unknown]
  - Toothache [Not Recovered/Not Resolved]
  - Neuralgia [Not Recovered/Not Resolved]
  - Deafness [Recovering/Resolving]
  - Blood urine present [Not Recovered/Not Resolved]
  - Chromaturia [Not Recovered/Not Resolved]
  - Ocular icterus [Unknown]
  - Dysphagia [Unknown]
  - Haemoglobin decreased [Not Recovered/Not Resolved]
  - Muscle spasms [Unknown]
  - Flatulence [Unknown]
  - Blood lactate dehydrogenase increased [Not Recovered/Not Resolved]
  - Jaundice [Unknown]
  - Nausea [Unknown]
  - Product dose omission issue [Unknown]
  - Chest pain [Recovering/Resolving]
  - Haemolysis [Not Recovered/Not Resolved]

NARRATIVE: CASE EVENT DATE: 20240709
